FAERS Safety Report 16089906 (Version 1)
Quarter: 2019Q2

REPORT INFORMATION
  Report Type: Spontaneous
  Country: US (occurrence: US)
  Receive Date: 20190319
  Receipt Date: 20190319
  Transmission Date: 20190711
  Serious: Yes (Hospitalization)
  Sender: FDA-Public Use
  Company Number: None

PATIENT
  Age: 53 Year
  Sex: Female

DRUGS (3)
  1. PROBIOTIC, VIT D3 [Concomitant]
  2. XELJANZ [Suspect]
     Active Substance: TOFACITINIB CITRATE
     Indication: RHEUMATOID ARTHRITIS
     Route: 048
     Dates: start: 20170705
  3. CYMBALTA, CELEBREX, LIPITOR, ASPIRIN, MAGNESIUM [Concomitant]

REACTIONS (1)
  - Post procedural infection [None]

NARRATIVE: CASE EVENT DATE: 20190318
